FAERS Safety Report 18220201 (Version 1)
Quarter: 2020Q3

REPORT INFORMATION
  Report Type: Spontaneous
  Country: GB (occurrence: GB)
  Receive Date: 20200902
  Receipt Date: 20200902
  Transmission Date: 20201103
  Serious: Yes (Disabling, Other)
  Sender: FDA-Public Use
  Company Number: GB-AUROBINDO-AUR-APL-2020-045674

PATIENT
  Age: 85 Year
  Sex: Male
  Weight: 75 kg

DRUGS (13)
  1. SERTRALINE [Concomitant]
     Active Substance: SERTRALINE HYDROCHLORIDE
     Dosage: 50 MILLIGRAM, ONCE A DAY (FOR 7 DAYS THEN STOP)
     Route: 048
     Dates: start: 20200608
  2. SERTRALINE [Concomitant]
     Active Substance: SERTRALINE HYDROCHLORIDE
     Indication: AFFECTIVE DISORDER
     Dosage: 100 MILLIGRAM, ONCE A DAY (INSTALMENTS: DISPENSE WEEKLY)
     Route: 048
     Dates: start: 20200608, end: 20200626
  3. SPIRONOLACTONE. [Concomitant]
     Active Substance: SPIRONOLACTONE
     Indication: PRODUCT USED FOR UNKNOWN INDICATION
     Dosage: 25 MILLIGRAM, ONCE A DAY (INSTALMENTS: DISPENSE WEEKLY. EVERY MORNING (FOR HEART))
     Route: 048
     Dates: start: 20200608
  4. FUROSEMIDE. [Concomitant]
     Active Substance: FUROSEMIDE
     Indication: FLUID RETENTION
     Dosage: 20 MILLIGRAM, ONCE A DAY (INSTALMENTS: DISPENSE WEEKLY. EVERY MORNING)
     Route: 065
     Dates: start: 20200608
  5. DONEPEZIL FILM?COATED TABLETS [Suspect]
     Active Substance: DONEPEZIL
     Indication: DEMENTIA
     Dosage: 10 MILLIGRAM
     Route: 048
  6. FOLIC ACID. [Concomitant]
     Active Substance: FOLIC ACID
     Indication: PRODUCT USED FOR UNKNOWN INDICATION
     Dosage: 5 MILLIGRAM, ONCE A DAY (INSTALMENTS: DISPENSE WEEKLY. VITAMIN)
     Route: 048
     Dates: start: 20200608
  7. SODIUM CHLORIDE. [Concomitant]
     Active Substance: SODIUM CHLORIDE
     Indication: PRODUCT USED FOR UNKNOWN INDICATION
     Dosage: 0.9 PERCENT (IRRIGATION SOLUTION. AS DIRECT0
     Route: 065
     Dates: start: 20200620
  8. COLECALCIFEROL [Concomitant]
     Active Substance: CHOLECALCIFEROL
     Indication: VITAMIN SUPPLEMENTATION
     Dosage: 800 INTERNATIONAL UNIT, ONCE A DAY (INSTALMENTS: DISPENSE WEEKLY)
     Route: 048
     Dates: start: 20200608
  9. ENALAPRIL [Concomitant]
     Active Substance: ENALAPRIL
     Indication: BLOOD PRESSURE MEASUREMENT
     Dosage: 2.5 MILLIGRAM, ONCE A DAY (INSTALMENTS: DISPENSE WEEKLY)
     Route: 048
     Dates: start: 20200608
  10. EDOXABAN [Concomitant]
     Active Substance: EDOXABAN TOSYLATE
     Indication: ATRIAL FIBRILLATION
     Dosage: 60 MILLIGRAM, ONCE A DAY (INSTALMENTS: DISPENSE WEEKLY. IN THE MORNING (TO THIN BLOOD FOR AF))
     Route: 048
     Dates: start: 20200608
  11. ATORVASTATIN [Concomitant]
     Active Substance: ATORVASTATIN
     Indication: BLOOD CHOLESTEROL
     Dosage: 20 MILLIGRAM, ONCE A DAY (INSTALMENTS: DISPENSE WEEKLY. IN THE MORNING)
     Route: 048
     Dates: start: 20200608
  12. PARACETAMOL [Concomitant]
     Active Substance: ACETAMINOPHEN
     Indication: PAIN
     Dosage: 500 MILLIGRAM (INSTALMENTS: DISPENSE WEEKLY. EVERY MORNING (FOR HEART))
     Route: 048
     Dates: start: 20200617
  13. BISOPROLOL [Concomitant]
     Active Substance: BISOPROLOL
     Indication: BLOOD PRESSURE MEASUREMENT
     Dosage: 1.25 MILLIGRAM, ONCE A DAY (INSTALMENTS: DISPENSE WEEKLY)
     Route: 048
     Dates: start: 20200608

REACTIONS (3)
  - Diarrhoea [Recovered/Resolved]
  - Anal incontinence [Recovered/Resolved]
  - Sedation [Recovered/Resolved]

NARRATIVE: CASE EVENT DATE: 20200624
